FAERS Safety Report 9187997 (Version 5)
Quarter: 2014Q2

REPORT INFORMATION
  Report Type: Report from Study
  Country: US (occurrence: US)
  Receive Date: 20130325
  Receipt Date: 20140612
  Transmission Date: 20141212
  Serious: Yes (Hospitalization)
  Sender: FDA-Public Use
  Company Number: US-GLAXOSMITHKLINE-A0969266A

PATIENT
  Sex: Female

DRUGS (4)
  1. ADVAIR [Suspect]
     Indication: CHRONIC OBSTRUCTIVE PULMONARY DISEASE
     Route: 055
  2. ALBUTEROL [Suspect]
     Indication: CHRONIC OBSTRUCTIVE PULMONARY DISEASE
     Route: 055
  3. EPINEPHRINE [Suspect]
     Indication: PRODUCT USED FOR UNKNOWN INDICATION
     Route: 065
  4. SULPHA DRUGS [Suspect]
     Indication: PRODUCT USED FOR UNKNOWN INDICATION
     Route: 065

REACTIONS (29)
  - Pneumonia [Unknown]
  - Cervical vertebral fracture [Unknown]
  - Oxygen saturation decreased [Unknown]
  - Intervertebral disc degeneration [Unknown]
  - Osteoporosis [Unknown]
  - Dyspnoea [Unknown]
  - Sleep apnoea syndrome [Unknown]
  - Somnolence [Unknown]
  - Viral infection [Unknown]
  - Malaise [Unknown]
  - Adverse event [Unknown]
  - Hypertrophic cardiomyopathy [Unknown]
  - Rash generalised [Unknown]
  - Skin ulcer [Unknown]
  - Skin lesion [Unknown]
  - Scar [Unknown]
  - Skin disorder [Unknown]
  - Contusion [Unknown]
  - Erythema [Unknown]
  - Alopecia [Unknown]
  - Anxiety [Unknown]
  - Epstein-Barr virus infection [Unknown]
  - Chronic fatigue syndrome [Unknown]
  - Wheezing [Unknown]
  - Oropharyngeal swelling [Unknown]
  - Drug hypersensitivity [Unknown]
  - Carpal tunnel syndrome [Unknown]
  - Motor dysfunction [Unknown]
  - Sensory loss [Unknown]
